FAERS Safety Report 5248101-2 (Version None)
Quarter: 2007Q1

REPORT INFORMATION
  Report Type: 
  Country: None (occurrence: None)
  Receive Date: 20070227
  Receipt Date: 20070226
  Transmission Date: 20070707
  Serious: Yes (Other)
  Sender: FDA-Public Use
  Company Number: US-GLAXOSMITHKLINE-A0641039A

PATIENT
  Age: 39 Year
  Sex: Female

DRUGS (3)
  1. LAMIVUDINE [Suspect]
     Indication: HIV INFECTION
     Dosage: 300MG PER DAY
     Route: 048
     Dates: start: 20030917
  2. DIDANOSINE [Concomitant]
     Dosage: 400MG PER DAY
     Route: 048
     Dates: start: 20030917
  3. ATAZANAVIR [Concomitant]
     Dosage: 800MG PER DAY
     Route: 048
     Dates: start: 20030917

REACTIONS (2)
  - ABORTION SPONTANEOUS [None]
  - DRUG EXPOSURE DURING PREGNANCY [None]
